FAERS Safety Report 6358759-2 (Version None)
Quarter: 2009Q3

REPORT INFORMATION
  Report Type: 
  Country: None (occurrence: None)
  Receive Date: 20090916
  Receipt Date: 20090817
  Transmission Date: 20100115
  Serious: No
  Sender: FDA-Public Use
  Company Number: US-ABBOTT-09P-163-0591773-00

PATIENT
  Sex: Female

DRUGS (8)
  1. TRILIPIX [Suspect]
     Indication: BLOOD TRIGLYCERIDES INCREASED
     Dates: start: 20090101, end: 20090706
  2. TRILIPIX [Suspect]
     Dates: start: 20090806, end: 20090813
  3. LEVOTHYROXINE SODIUM [Concomitant]
     Indication: HYPOTHYROIDISM
     Dosage: DOESN'T REMEMBER
     Dates: start: 19690101
  4. LISINOPRIL [Concomitant]
     Indication: HYPERTENSION
     Dosage: UNKNOWN
  5. MULTI-VITAMINS [Concomitant]
     Indication: VITAMIN SUPPLEMENTATION
     Dosage: UNKNOWN
  6. CALCIUM [Concomitant]
     Indication: MINERAL SUPPLEMENTATION
     Dosage: UNKNOWN
  7. PRIMAL DEFENSE [Concomitant]
     Indication: PROBIOTIC THERAPY
     Dosage: UNKNOWN
     Route: 048
  8. CITRUCEL [Concomitant]
     Indication: CONSTIPATION
     Dosage: UNKNOWN
     Route: 048

REACTIONS (3)
  - DRY SKIN [None]
  - ERYTHEMA [None]
  - PRURITUS [None]
